FAERS Safety Report 11005407 (Version 2)
Quarter: 2016Q2

REPORT INFORMATION
  Report Type: Spontaneous
  Country: US (occurrence: US)
  Receive Date: 20150409
  Receipt Date: 20160415
  Transmission Date: 20160815
  Serious: No
  Sender: FDA-Public Use
  Company Number: US-ALLERGAN-1502779US

PATIENT
  Age: 72 Year
  Sex: Female
  Weight: 52.15 kg

DRUGS (11)
  1. FISH OIL [Concomitant]
     Active Substance: FISH OIL
     Dosage: UNK
  2. SODIUM SULAMYD [Concomitant]
     Active Substance: SULFACETAMIDE SODIUM
     Dosage: UNK
     Route: 047
     Dates: start: 20141118, end: 20150323
  3. BABY ASPIRIN [Concomitant]
     Active Substance: ASPIRIN
     Dosage: UNK
  4. CALCIUM [Concomitant]
     Active Substance: CALCIUM
     Indication: BONE DISORDER
     Dosage: UNK
  5. XALATAN [Concomitant]
     Active Substance: LATANOPROST
     Dosage: UNK
     Route: 047
     Dates: start: 20150323
  6. VITAMIN D                          /00107901/ [Concomitant]
     Active Substance: ERGOCALCIFEROL
     Indication: VITAMIN D DEFICIENCY
     Dosage: UNK
  7. TRUSOPT [Concomitant]
     Active Substance: DORZOLAMIDE HYDROCHLORIDE
     Dosage: UNK
     Route: 047
     Dates: start: 20141206, end: 20150323
  8. SYNTHROID [Concomitant]
     Active Substance: LEVOTHYROXINE SODIUM
     Indication: HYPOTHYROIDISM
     Dosage: UNK
  9. PILOCARPINE. [Concomitant]
     Active Substance: PILOCARPINE
     Dosage: UNK
     Route: 047
     Dates: start: 20140929, end: 20150323
  10. LUMIGAN [Suspect]
     Active Substance: BIMATOPROST
     Indication: INTRAOCULAR PRESSURE TEST
     Dosage: 2 GTT, QHS
     Route: 047
     Dates: start: 20141222, end: 20150223
  11. ZIOPTAN [Concomitant]
     Active Substance: TAFLUPROST
     Dosage: UNK
     Route: 047
     Dates: end: 20150323

REACTIONS (12)
  - Wrong technique in product usage process [Unknown]
  - Lichen planus [Recovered/Resolved]
  - Swollen tongue [Recovered/Resolved]
  - Ocular hyperaemia [Recovered/Resolved]
  - Mouth swelling [Recovered/Resolved]
  - Accidental exposure to product [Unknown]
  - Abnormal sensation in eye [Unknown]
  - Glossodynia [Recovered/Resolved]
  - Dysarthria [Recovered/Resolved]
  - Tongue discolouration [Recovered/Resolved]
  - Cerebrovascular accident [Unknown]
  - Pharyngeal disorder [Unknown]

NARRATIVE: CASE EVENT DATE: 201412
